FAERS Safety Report 6652829-7 (Version None)
Quarter: 2010Q1

REPORT INFORMATION
  Report Type: 
  Country: None (occurrence: None)
  Receive Date: 20100325
  Receipt Date: 20100325
  Transmission Date: 20100710
  Serious: Yes (Other)
  Sender: FDA-Public Use
  Company Number: None

PATIENT
  Age: 70 Year
  Sex: Female
  Weight: 54.4316 kg

DRUGS (1)
  1. METRONIDAZOLE [Suspect]
     Indication: ANTIBIOTIC THERAPY
     Dosage: 1 TABLET EVERY 8 HRS/3X DAY DENTAL
     Route: 004
     Dates: start: 20100323, end: 20100324

REACTIONS (2)
  - EYE SWELLING [None]
  - VULVOVAGINAL PRURITUS [None]
